FAERS Safety Report 9100392 (Version 2)
Quarter: 2013Q1

REPORT INFORMATION
  Report Type: Report from Study
  Country: FR (occurrence: FR)
  Receive Date: 20130214
  Receipt Date: 20130226
  Transmission Date: 20140127
  Serious: Yes (Death, Life-Threatening)
  Sender: FDA-Public Use
  Company Number: FR-BAYER-2012-127846

PATIENT
  Age: 77 Year
  Sex: Male
  Weight: 82 kg

DRUGS (8)
  1. REGORAFENIB [Suspect]
     Indication: COLORECTAL CANCER METASTATIC
     Dosage: 160 MG, QD
     Route: 048
     Dates: start: 20120901, end: 20120921
  2. REGORAFENIB [Suspect]
     Indication: COLORECTAL CANCER METASTATIC
     Dosage: 120 MG, QD
     Route: 048
     Dates: start: 20120929, end: 20121019
  3. REGORAFENIB [Suspect]
     Indication: COLORECTAL CANCER METASTATIC
     Dosage: 120 MG, QD
     Route: 048
     Dates: start: 20121027, end: 20121109
  4. BISOPROLOL [Concomitant]
     Indication: HYPERTENSION
     Dosage: DAILY DOSE 5 MG
     Route: 048
  5. KARDEGIC [Concomitant]
     Indication: TACHYARRHYTHMIA
     Dosage: DAILY DOSE 160 MG
     Route: 048
  6. EZETROL [Concomitant]
     Indication: HYPERCHOLESTEROLAEMIA
     Dosage: DAILY DOSE 20 MG
     Route: 048
  7. LANSOPRAZOLE [Concomitant]
     Indication: OESOPHAGEAL SPASM
     Dosage: DAILY DOSE 30 MG
     Route: 048
  8. HYPNOVEL [Concomitant]
     Indication: PALLIATIVE CARE
     Dosage: DAILY DOSE .5 MG/HR
     Route: 042
     Dates: start: 20121130

REACTIONS (2)
  - Blood bilirubin increased [Not Recovered/Not Resolved]
  - General physical health deterioration [Fatal]
